FAERS Safety Report 8204116-3 (Version None)
Quarter: 2012Q1

REPORT INFORMATION
  Report Type: 
  Country: None (occurrence: None)
  Receive Date: 20120313
  Receipt Date: 20120305
  Transmission Date: 20120608
  Serious: No
  Sender: FDA-Public Use
  Company Number: SE-EISAI INC-E2020-10396-SPO-SE

PATIENT
  Sex: Male
  Weight: 58.5 kg

DRUGS (9)
  1. ARICEPT [Suspect]
     Route: 048
     Dates: start: 20111103, end: 20111103
  2. FUROSEMIDE [Concomitant]
     Route: 048
     Dates: start: 20120224
  3. POTASSIUM CHLORIDE [Concomitant]
     Route: 048
     Dates: end: 20120216
  4. ARICEPT [Suspect]
     Indication: MEMORY IMPAIRMENT
     Route: 048
     Dates: start: 20111101, end: 20111102
  5. POTASSIUM CHLORIDE [Concomitant]
     Route: 048
     Dates: start: 20120224, end: 20120227
  6. ARICEPT [Suspect]
     Route: 048
     Dates: start: 20111101
  7. FUROSEMIDE [Concomitant]
     Route: 048
     Dates: end: 20120216
  8. SIMVASTATIN [Concomitant]
  9. METOPROLOL SUCCINATE [Concomitant]

REACTIONS (5)
  - VOMITING [None]
  - OVERDOSE [None]
  - ASTHENIA [None]
  - BALANCE DISORDER [None]
  - NAUSEA [None]
